FAERS Safety Report 6228563-4 (Version None)
Quarter: 2009Q2

REPORT INFORMATION
  Report Type: 
  Country: None (occurrence: None)
  Receive Date: 20090612
  Receipt Date: 20090608
  Transmission Date: 20091009
  Serious: Yes (Death)
  Sender: FDA-Public Use
  Company Number: VE-ABBOTT-09P-178-0577626-00

PATIENT
  Sex: Female
  Weight: 99 kg

DRUGS (6)
  1. HUMIRA [Suspect]
     Indication: RHEUMATOID ARTHRITIS
     Route: 058
     Dates: start: 20070301, end: 20090501
  2. ALDACTONE [Concomitant]
     Indication: HYPERTENSION
  3. TILAZEM [Concomitant]
     Indication: HYPERTENSION
  4. TAFIL [Concomitant]
     Indication: INSOMNIA
  5. VYTORIN [Concomitant]
     Indication: HYPERCHOLESTEROLAEMIA
  6. DAFLON [Concomitant]
     Indication: VENOUS THROMBOSIS

REACTIONS (1)
  - MYOCARDIAL INFARCTION [None]
